FAERS Safety Report 8737499 (Version 4)
Quarter: 2015Q1

REPORT INFORMATION
  Report Type: Spontaneous
  Country: JP (occurrence: JP)
  Receive Date: 20120822
  Receipt Date: 20150324
  Transmission Date: 20150721
  Serious: Yes (Hospitalization)
  Sender: FDA-Public Use
  Company Number: JP-009507513-1208JPN001340

PATIENT
  Age: 70 Year
  Sex: Female
  Weight: 30.5 kg

DRUGS (6)
  1. REBETOL [Suspect]
     Active Substance: RIBAVIRIN
     Dosage: 400 MG, BID
     Route: 048
     Dates: start: 20110624, end: 20120530
  2. URSO [Concomitant]
     Active Substance: URSODIOL
     Dosage: 600 MG, DAILY
     Route: 048
     Dates: end: 20120530
  3. PEGINTRON [Suspect]
     Active Substance: PEGINTERFERON ALFA-2B
     Indication: CHRONIC HEPATITIS C
     Dosage: 20 MICROGRAM, EVERY WEEK
     Route: 058
     Dates: end: 20120523
  4. PEGINTRON [Suspect]
     Active Substance: PEGINTERFERON ALFA-2B
     Dosage: 40 MICROGRAM, EVERY WEEK
     Route: 058
  5. PEGINTRON [Suspect]
     Active Substance: PEGINTERFERON ALFA-2B
     Dosage: 60 MICROGRAM, EVERY WEEK
     Route: 058
     Dates: start: 20110602
  6. REBETOL [Suspect]
     Active Substance: RIBAVIRIN
     Indication: HEPATITIS C
     Dosage: 600 MG, DAILY
     Route: 048
     Dates: start: 20110602, end: 20110623

REACTIONS (2)
  - Peritoneal tuberculosis [Not Recovered/Not Resolved]
  - Neutrophil count decreased [Unknown]

NARRATIVE: CASE EVENT DATE: 201206
